FAERS Safety Report 4398309-3 (Version None)
Quarter: 2004Q3

REPORT INFORMATION
  Report Type: 
  Country: None (occurrence: None)
  Receive Date: 20040712
  Receipt Date: 20040624
  Transmission Date: 20050211
  Serious: Yes (Other)
  Sender: FDA-Public Use
  Company Number: 2004045163

PATIENT
  Age: 17 Year
  Sex: Male

DRUGS (3)
  1. CETIRIZINE/PSEUDOEPHEDRINE (CETIRIZINE, PSEUDOEPHEDRINE) [Suspect]
     Indication: NASOPHARYNGITIS
     Dosage: 2 DF (2 IN 1 D)
     Dates: start: 20031124
  2. PERDOLAN (ACETYLSALICYLIC ACID, BROMISOVAL, CAFFEINE, CARBROMAL,CODEIN [Suspect]
     Indication: PAIN
     Dosage: 3 DF
     Dates: start: 20031124
  3. EUCALYPTUS OIL (EUCALYPTUS OIL) [Suspect]
     Indication: COUGH
     Dosage: 3 DF
     Dates: start: 20031124

REACTIONS (5)
  - EPILEPSY [None]
  - FAECAL INCONTINENCE [None]
  - HEADACHE [None]
  - LOSS OF CONSCIOUSNESS [None]
  - MUSCLE CONTRACTURE [None]
